FAERS Safety Report 9168250 (Version 1)
Quarter: 2013Q1

REPORT INFORMATION
  Report Type: Spontaneous
  Country: US (occurrence: US)
  Receive Date: 20130318
  Receipt Date: 20130318
  Transmission Date: 20140127
  Serious: No
  Sender: FDA-Public Use
  Company Number: US-TEVA-367039USA

PATIENT
  Sex: 0

DRUGS (3)
  1. IRINOTECAN [Suspect]
  2. LEUCOVORIN CALCIUM [Suspect]
  3. FLUOROURACIL [Suspect]

REACTIONS (1)
  - Treatment failure [Unknown]
